FAERS Safety Report 26212735 (Version 1)
Quarter: 2025Q4

REPORT INFORMATION
  Report Type: Report from Study
  Country: EU (occurrence: EU)
  Receive Date: 20251230
  Receipt Date: 20251230
  Transmission Date: 20260119
  Serious: Yes (Other)
  Sender: MERZ
  Company Number: EU-ACORDA THERAPEUTICS IRELAND LIMITED-ACO_178238_2025

PATIENT
  Sex: Male

DRUGS (7)
  1. INBRIJA [Suspect]
     Active Substance: LEVODOPA
     Indication: On and off phenomenon
     Dosage: 33 MILLIGRAM
  2. INBRIJA [Suspect]
     Active Substance: LEVODOPA
     Indication: Parkinsonian crisis
     Dosage: 33 MILLIGRAM
     Dates: start: 202503
  3. INBRIJA [Suspect]
     Active Substance: LEVODOPA
     Dosage: 33 MILLIGRAM
     Route: 065
  4. XADAGO [Concomitant]
     Active Substance: SAFINAMIDE MESYLATE
     Indication: Product used for unknown indication
     Dosage: 50 MILLIGRAM, QD (1-0-0)
     Route: 065
  5. SINEMET [Concomitant]
     Active Substance: CARBIDOPA\LEVODOPA
     Indication: Product used for unknown indication
     Dosage: 25/250 MG, QID (7,11:30,16:30,20:30H)
     Route: 065
  6. NEUPRO [Concomitant]
     Active Substance: ROTIGOTINE
     Indication: Product used for unknown indication
     Dosage: 8 MILLIGRAM 2 X DAY (1-0-0)
     Route: 065
  7. CARBIDOPA\LEVODOPA [Concomitant]
     Active Substance: CARBIDOPA\LEVODOPA
     Indication: Product used for unknown indication
     Dosage: 25MG/100MG
     Route: 065
     Dates: start: 20251209

REACTIONS (24)
  - Parkinson^s disease [Unknown]
  - Feeling abnormal [Unknown]
  - Sluggishness [Unknown]
  - Condition aggravated [Unknown]
  - Sleep apnoea syndrome [Unknown]
  - On and off phenomenon [Unknown]
  - Fatigue [Unknown]
  - Insomnia [Unknown]
  - Headache [Unknown]
  - Initial insomnia [Unknown]
  - Cough [Not Recovered/Not Resolved]
  - Therapeutic response shortened [Unknown]
  - Treatment noncompliance [Not Recovered/Not Resolved]
  - Expulsion of medication [Unknown]
  - Wrong technique in product usage process [Unknown]
  - Incorrect dose administered by device [Not Recovered/Not Resolved]
  - Device difficult to use [Unknown]
  - Device issue [Unknown]
  - Device maintenance issue [Unknown]
  - Product cleaning inadequate [Not Recovered/Not Resolved]
  - Device occlusion [Not Recovered/Not Resolved]
  - Intentional product misuse [Not Recovered/Not Resolved]
  - Drug ineffective [Unknown]
  - Patient dissatisfaction with device [Unknown]
